FAERS Safety Report 7919045-X (Version None)
Quarter: 2011Q4

REPORT INFORMATION
  Report Type: 
  Country: None (occurrence: None)
  Receive Date: 20111116
  Receipt Date: 20111109
  Transmission Date: 20120403
  Serious: Yes (Death, Hospitalization, Disabling, Other)
  Sender: FDA-Public Use
  Company Number: CZ-ABBOTT-11P-217-0851373-00

PATIENT
  Sex: Female
  Weight: 80 kg

DRUGS (34)
  1. ANOPYRIN [Concomitant]
     Indication: MYOCARDIAL ISCHAEMIA
     Route: 048
     Dates: start: 20100927
  2. EGILOK [Concomitant]
     Indication: ARRHYTHMIA
     Route: 048
     Dates: start: 20100901
  3. BROMHEXIN [Concomitant]
     Indication: PRODUCT USED FOR UNKNOWN INDICATION
  4. ACC LONG [Concomitant]
     Indication: PRODUCT USED FOR UNKNOWN INDICATION
  5. FUROSEMIDE [Concomitant]
     Indication: MYOCARDIAL ISCHAEMIA
     Route: 048
     Dates: start: 20100901
  6. SECATOXIN [Concomitant]
     Indication: HEADACHE
     Route: 048
     Dates: start: 20100901
  7. CALCIUM CARBONICUM [Concomitant]
     Indication: HYPERPHOSPHATAEMIA
     Route: 048
     Dates: start: 20110420
  8. ZOLPIDEM TARTRATE [Concomitant]
     Indication: PRODUCT USED FOR UNKNOWN INDICATION
  9. CORDARONE [Concomitant]
     Indication: PRODUCT USED FOR UNKNOWN INDICATION
  10. TIAPRIDAL [Concomitant]
     Indication: PRODUCT USED FOR UNKNOWN INDICATION
  11. CEFZIL [Concomitant]
     Indication: PRODUCT USED FOR UNKNOWN INDICATION
  12. NA HCO3 [Concomitant]
     Indication: PRODUCT USED FOR UNKNOWN INDICATION
  13. VULMIZOLIN [Concomitant]
     Indication: PRODUCT USED FOR UNKNOWN INDICATION
  14. LEVOTHYROXINE SODIUM [Concomitant]
     Indication: HYPOTHYROIDISM
     Route: 048
     Dates: start: 20100901
  15. NOVALGIN [Concomitant]
     Indication: PRODUCT USED FOR UNKNOWN INDICATION
  16. LACTULOSA [Concomitant]
     Indication: PRODUCT USED FOR UNKNOWN INDICATION
  17. CIPRO [Concomitant]
     Indication: PRODUCT USED FOR UNKNOWN INDICATION
  18. DEXAMETHASONE SODIUM PHOSPHATE [Concomitant]
     Indication: PRODUCT USED FOR UNKNOWN INDICATION
  19. ZEMPLAR [Suspect]
     Indication: HYPERPARATHYROIDISM SECONDARY
     Route: 048
     Dates: start: 20110420, end: 20110831
  20. ALLOPURINOL [Concomitant]
     Indication: HYPERURICAEMIA
     Route: 048
     Dates: start: 20100901
  21. DOLMINA [Concomitant]
     Indication: PRODUCT USED FOR UNKNOWN INDICATION
     Dosage: GEL
  22. DOLSIN [Concomitant]
     Indication: PRODUCT USED FOR UNKNOWN INDICATION
  23. ERDOMED [Concomitant]
     Indication: PRODUCT USED FOR UNKNOWN INDICATION
  24. TRAMADOL HYDROCHLORIDE [Concomitant]
     Indication: PRODUCT USED FOR UNKNOWN INDICATION
  25. DIAZEPAM [Concomitant]
     Indication: PRODUCT USED FOR UNKNOWN INDICATION
  26. PARALEN [Concomitant]
     Indication: PRODUCT USED FOR UNKNOWN INDICATION
  27. FENOLAX [Concomitant]
     Indication: PRODUCT USED FOR UNKNOWN INDICATION
  28. MANNITOL [Concomitant]
     Indication: PRODUCT USED FOR UNKNOWN INDICATION
  29. ATROPINE [Concomitant]
     Indication: PRODUCT USED FOR UNKNOWN INDICATION
  30. DETRALEX [Concomitant]
     Indication: VENOUS INSUFFICIENCY
     Route: 048
     Dates: start: 20100901
  31. FRESUBIN [Concomitant]
     Indication: PRODUCT USED FOR UNKNOWN INDICATION
  32. FRAXIPARIN [Concomitant]
     Indication: PRODUCT USED FOR UNKNOWN INDICATION
  33. HEPAROID [Concomitant]
     Indication: PRODUCT USED FOR UNKNOWN INDICATION
  34. CODEINE SUL TAB [Concomitant]
     Indication: PRODUCT USED FOR UNKNOWN INDICATION

REACTIONS (56)
  - HEADACHE [None]
  - INCREASED UPPER AIRWAY SECRETION [None]
  - ISCHAEMIC STROKE [None]
  - ALTERED STATE OF CONSCIOUSNESS [None]
  - DEHYDRATION [None]
  - OEDEMA PERIPHERAL [None]
  - C-REACTIVE PROTEIN INCREASED [None]
  - CAROTID ARTERY INSUFFICIENCY [None]
  - HYPERGLYCAEMIA [None]
  - DEPRESSION [None]
  - FISTULA [None]
  - CEREBRAL HYPOPERFUSION [None]
  - DIARRHOEA [None]
  - ATRIAL FIBRILLATION [None]
  - INJECTION SITE HAEMATOMA [None]
  - BRONCHITIS [None]
  - DEPENDENT PERSONALITY DISORDER [None]
  - CARDIAC FAILURE [None]
  - BLOOD PARATHYROID HORMONE DECREASED [None]
  - RENAL IMPAIRMENT [None]
  - ARTERIOVENOUS FISTULA SITE COMPLICATION [None]
  - BACK PAIN [None]
  - SOMNOLENCE [None]
  - URINE ANALYSIS ABNORMAL [None]
  - RENAL FAILURE [None]
  - VOMITING [None]
  - TROPONIN INCREASED [None]
  - RENAL FAILURE CHRONIC [None]
  - SICK SINUS SYNDROME [None]
  - ARTERIOSCLEROSIS [None]
  - SYNCOPE [None]
  - CHEST DISCOMFORT [None]
  - BLOOD CREATININE INCREASED [None]
  - PALLOR [None]
  - CEREBRAL HAEMORRHAGE [None]
  - ANXIETY [None]
  - MINERAL METABOLISM DISORDER [None]
  - URINE OUTPUT DECREASED [None]
  - URINARY TRACT INFECTION [None]
  - PAIN IN EXTREMITY [None]
  - DYSPNOEA [None]
  - ANTICOAGULANT THERAPY [None]
  - HEMIPARESIS [None]
  - MOBILITY DECREASED [None]
  - MENINGIOMA [None]
  - INFLAMMATORY MARKER INCREASED [None]
  - PYREXIA [None]
  - HYPOTONIA [None]
  - CARDIORENAL SYNDROME [None]
  - ACTIVITIES OF DAILY LIVING IMPAIRED [None]
  - NAUSEA [None]
  - WHEEZING [None]
  - APHASIA [None]
  - HYPOTENSION [None]
  - GAIT DISTURBANCE [None]
  - BRADYCARDIA [None]
